FAERS Safety Report 9475605 (Version 1)
Quarter: 2013Q3

REPORT INFORMATION
  Report Type: Report from Study
  Country: MX (occurrence: MX)
  Receive Date: 20130826
  Receipt Date: 20130826
  Transmission Date: 20140515
  Serious: Yes (Hospitalization, Other)
  Sender: FDA-Public Use
  Company Number: PHHY2013MX091787

PATIENT
  Age: 59 Year
  Sex: Male

DRUGS (5)
  1. EXFORGE HCT [Suspect]
     Indication: HYPERTENSION
     Dosage: 1 DF (320MG VALS+10MG AMLO+25 MG HCT), DAILY
     Route: 048
     Dates: start: 201306, end: 20130819
  2. KOMBIGLYZE [Concomitant]
     Indication: DIABETES MELLITUS
     Dosage: 1 DF, DAILY
     Dates: start: 201306
  3. LIPITOR [Concomitant]
     Indication: NERVOUS SYSTEM DISORDER
     Dosage: 2 UKN, DAILY
     Dates: start: 201306
  4. ATARAX [Concomitant]
     Indication: NERVOUS SYSTEM DISORDER
     Dosage: 2 DF, DAILY
     Dates: start: 201306
  5. OMEPRAZOLE [Concomitant]
     Indication: GASTRIC ULCER
     Dosage: 2 DF, DAILY
     Dates: start: 201306

REACTIONS (4)
  - Cerebellar embolism [Recovering/Resolving]
  - Dysphagia [Not Recovered/Not Resolved]
  - Renal failure [Not Recovered/Not Resolved]
  - Asthenia [Recovering/Resolving]
